FAERS Safety Report 12065708 (Version 4)
Quarter: 2016Q4

REPORT INFORMATION
  Report Type: Spontaneous
  Country: BR (occurrence: BR)
  Receive Date: 20160210
  Receipt Date: 20161018
  Transmission Date: 20170206
  Serious: Yes (Other)
  Sender: FDA-Public Use
  Company Number: BR-AMGEN-BRASP2016015526

PATIENT
  Age: 63 Year
  Sex: Female
  Weight: 100 kg

DRUGS (6)
  1. METHOTREXATE. [Concomitant]
     Active Substance: METHOTREXATE
     Dosage: UNK
  2. NIMESULIDE [Concomitant]
     Active Substance: NIMESULIDE
     Dosage: UNK
  3. ENBREL [Suspect]
     Active Substance: ETANERCEPT
     Indication: PSORIATIC ARTHROPATHY
     Dosage: 50 MG, ONCE A WEEK
     Route: 058
     Dates: start: 20150330, end: 201508
  4. PREDNISONE. [Concomitant]
     Active Substance: PREDNISONE
     Dosage: UNK
  5. ENBREL [Suspect]
     Active Substance: ETANERCEPT
     Dosage: UNK
     Route: 065
     Dates: start: 201604
  6. DORFLEX [Concomitant]
     Active Substance: CAFFEINE\DIPYRONE\ORPHENADRINE
     Dosage: UNK

REACTIONS (11)
  - Anxiety [Unknown]
  - Condition aggravated [Unknown]
  - Stress [Unknown]
  - Drug ineffective [Unknown]
  - Mobility decreased [Unknown]
  - Wound [Unknown]
  - Fall [Unknown]
  - Peripheral swelling [Unknown]
  - Depression [Unknown]
  - Psoriatic arthropathy [Unknown]
  - Wrist fracture [Unknown]

NARRATIVE: CASE EVENT DATE: 20161003
